FAERS Safety Report 19650179 (Version 1)
Quarter: 2021Q3

REPORT INFORMATION
  Report Type: Spontaneous
  Country: US (occurrence: US)
  Receive Date: 20210801
  Receipt Date: 20210801
  Transmission Date: 20211014
  Serious: No
  Sender: FDA-Public Use
  Company Number: None

PATIENT
  Age: 28 Year
  Sex: Female

DRUGS (1)
  1. HUMIRA [Suspect]
     Active Substance: ADALIMUMAB
     Indication: HIDRADENITIS
     Route: 058
     Dates: start: 202106

REACTIONS (6)
  - Urticaria [None]
  - Skin irritation [None]
  - Immunosuppression [None]
  - Miliaria [None]
  - Staphylococcal infection [None]
  - Rash [None]

NARRATIVE: CASE EVENT DATE: 20210601
